FAERS Safety Report 20462146 (Version 1)
Quarter: 2022Q1

REPORT INFORMATION
  Report Type: Spontaneous
  Country: US (occurrence: US)
  Receive Date: 20220211
  Receipt Date: 20220211
  Transmission Date: 20220423
  Serious: No
  Sender: FDA-Public Use
  Company Number: US-SUNOVION-2022SUN000334

PATIENT
  Sex: Male

DRUGS (4)
  1. LATUDA [Suspect]
     Active Substance: LURASIDONE HYDROCHLORIDE
     Indication: Bipolar disorder
     Dosage: 80 MG, QD, AT NIGHT
     Route: 048
  2. LATUDA [Suspect]
     Active Substance: LURASIDONE HYDROCHLORIDE
     Dosage: 80 MG, QD, IN THE MORNING
     Route: 048
  3. KLONOPIN [Concomitant]
     Active Substance: CLONAZEPAM
     Dosage: UNK, AT NIGHT
     Route: 065
  4. GABAPENTIN [Concomitant]
     Active Substance: GABAPENTIN
     Dosage: UNK, AT NIGHT
     Route: 065

REACTIONS (5)
  - Drug ineffective [Unknown]
  - Lethargy [Unknown]
  - Depressed mood [Unknown]
  - Asthenia [Unknown]
  - Initial insomnia [Unknown]
